FAERS Safety Report 11169446 (Version 2)
Quarter: 2015Q3

REPORT INFORMATION
  Report Type: Spontaneous
  Country: FR (occurrence: FR)
  Receive Date: 20150605
  Receipt Date: 20150805
  Transmission Date: 20151125
  Serious: Yes (Hospitalization)
  Sender: FDA-Public Use
  Company Number: FR-MERCK-1506FRA002650

PATIENT
  Age: 86 Year
  Sex: Male

DRUGS (15)
  1. VENTOLIN [Suspect]
     Active Substance: ALBUTEROL SULFATE
     Dosage: UNK
  2. TEMESTA [Suspect]
     Active Substance: LORAZEPAM
     Dosage: UNK
     Route: 048
  3. RILMENTIDINE [Suspect]
     Active Substance: RILMENIDINE
     Dosage: UNK
     Route: 048
  4. AERIUS [Suspect]
     Active Substance: DESLORATADINE
     Dosage: UNK
     Route: 048
  5. NITRIDERM [Suspect]
     Active Substance: NITROGLYCERIN
     Dosage: UNK
     Route: 062
  6. FLECTOR [Suspect]
     Active Substance: DICLOFENAC EPOLAMINE
     Dosage: UNK
     Route: 061
  7. SYMBICORT [Suspect]
     Active Substance: BUDESONIDE\FORMOTEROL FUMARATE DIHYDRATE
     Dosage: UNK
     Route: 055
  8. CARDENSIEL [Suspect]
     Active Substance: BISOPROLOL FUMARATE
     Dosage: UNK
     Route: 048
  9. DAFALGAN [Suspect]
     Active Substance: ACETAMINOPHEN
     Dosage: UNK
     Route: 048
  10. SACCHAROMYCES [Suspect]
     Active Substance: SACCHAROMYCES CEREVISIAE
     Dosage: UNK
     Route: 048
  11. VITAMIN B1 B6 BAYER [Suspect]
     Active Substance: PYRIDOXINE HYDROCHLORIDE\THIAMINE HYDROCHLORIDE
     Dosage: UNK
     Route: 048
  12. NOVO-NORM [Suspect]
     Active Substance: REPAGLINIDE
     Dosage: UNK
     Route: 048
  13. STABLON [Suspect]
     Active Substance: TIANEPTINE
     Dosage: UNK
     Route: 048
  14. INEXIUM (ESOMEPRAZOLE MAGNESIUM) [Suspect]
     Active Substance: ESOMEPRAZOLE MAGNESIUM
     Dosage: UNK
     Route: 048
  15. DUROGESIC [Suspect]
     Active Substance: FENTANYL
     Dosage: UNK
     Route: 062

REACTIONS (2)
  - Prurigo [Recovering/Resolving]
  - Pemphigoid [Recovering/Resolving]
